FAERS Safety Report 5982477-3 (Version None)
Quarter: 2008Q4

REPORT INFORMATION
  Report Type: 
  Country: None (occurrence: None)
  Receive Date: 20081205
  Receipt Date: 20081205
  Transmission Date: 20090506
  Serious: Yes (Other)
  Sender: FDA-Public Use
  Company Number: None

PATIENT
  Sex: Female

DRUGS (2)
  1. LAMOTRIGINE [Suspect]
     Indication: BIPOLAR DISORDER
     Dosage: 200 MG 1 X DAY
     Dates: start: 20081004, end: 20081110
  2. LAMOTRIGINE [Suspect]
     Indication: DEPRESSION
     Dosage: 200 MG 1 X DAY
     Dates: start: 20081004, end: 20081110

REACTIONS (5)
  - CRYING [None]
  - DEPRESSED MOOD [None]
  - DRUG INEFFECTIVE [None]
  - FEELING ABNORMAL [None]
  - THERAPEUTIC RESPONSE UNEXPECTED WITH DRUG SUBSTITUTION [None]
